FAERS Safety Report 6123850-2 (Version None)
Quarter: 2009Q1

REPORT INFORMATION
  Report Type: 
  Country: None (occurrence: None)
  Receive Date: 20090318
  Receipt Date: 20090318
  Transmission Date: 20090719
  Serious: Yes (Hospitalization)
  Sender: FDA-Public Use
  Company Number: None

PATIENT
  Age: 59 Year
  Sex: Male
  Weight: 76 kg

DRUGS (6)
  1. LEVAQUIN [Suspect]
     Indication: PNEUMONIA
     Dosage: 500MG DAILY PO
     Route: 048
     Dates: start: 20090228, end: 20090307
  2. AZITHROMYCIN [Suspect]
     Indication: PNEUMONIA
     Dosage: 250MG DAILY PO
     Route: 048
     Dates: start: 20090224, end: 20090228
  3. VICODIN [Concomitant]
  4. IBUPROFEN TABLETS [Concomitant]
  5. ASMANEX TWISTHALER [Concomitant]
  6. ALBUTEROL [Concomitant]

REACTIONS (3)
  - ABDOMINAL PAIN [None]
  - BILE DUCT STONE [None]
  - PANCREATITIS [None]
